FAERS Safety Report 13585913 (Version 3)
Quarter: 2017Q2

REPORT INFORMATION
  Report Type: Report from Study
  Country: None (occurrence: DE)
  Receive Date: 20170526
  Receipt Date: 20170613
  Transmission Date: 20170830
  Serious: Yes (Death, Life-Threatening, Hospitalization)
  Sender: FDA-Public Use
  Company Number: DE-ABBVIE-17P-062-1980180-00

PATIENT
  Age: 69 Year
  Sex: Female

DRUGS (20)
  1. SOBELIN [Concomitant]
     Active Substance: CLINDAMYCIN HYDROCHLORIDE
     Indication: INFECTION
     Route: 048
     Dates: start: 20170326
  2. PANTOZOL [Concomitant]
     Active Substance: PANTOPRAZOLE SODIUM
     Indication: PROPHYLAXIS
     Route: 048
  3. VOMEX [Concomitant]
     Active Substance: DIMENHYDRINATE
     Indication: PROPHYLAXIS OF NAUSEA AND VOMITING
     Route: 048
     Dates: start: 20170503
  4. VENETOCLAX [Suspect]
     Active Substance: VENETOCLAX
     Dosage: CYCLE 1
     Route: 048
     Dates: start: 20170321, end: 20170321
  5. SOBELIN [Concomitant]
     Active Substance: CLINDAMYCIN HYDROCHLORIDE
     Indication: VASCULAR ACCESS SITE INFECTION
     Route: 048
     Dates: start: 20170406, end: 20170415
  6. VENETOCLAX [Suspect]
     Active Substance: VENETOCLAX
     Dosage: CYCLE 1
     Route: 048
     Dates: start: 20170420, end: 20170423
  7. AZACITIDINE. [Suspect]
     Active Substance: AZACITIDINE
     Dosage: CYCLE 2
     Route: 058
     Dates: start: 20170424, end: 20170430
  8. VENETOCLAX [Suspect]
     Active Substance: VENETOCLAX
     Dosage: CYCLE 2
     Route: 048
     Dates: start: 20170424, end: 20170517
  9. CONCOR [Concomitant]
     Active Substance: BISOPROLOL FUMARATE
     Indication: CARDIAC FAILURE
     Route: 048
  10. APIDRA [Concomitant]
     Active Substance: INSULIN GLULISINE
     Indication: DIABETES MELLITUS
     Route: 058
  11. DELIX [Concomitant]
     Active Substance: RAMIPRIL
     Indication: CARDIAC FAILURE
     Route: 048
     Dates: end: 20170320
  12. MOVICOL [Concomitant]
     Active Substance: POLYETHYLENE GLYCOL 3350\POTASSIUM CHLORIDE\SODIUM BICARBONATE\SODIUM CHLORIDE
     Indication: CONSTIPATION
  13. VENETOCLAX [Suspect]
     Active Substance: VENETOCLAX
     Dosage: CYCLE 1
     Route: 048
     Dates: start: 20170322, end: 20170412
  14. AZACITIDINE. [Suspect]
     Active Substance: AZACITIDINE
     Indication: MYELODYSPLASTIC SYNDROME
     Dosage: CYCLE 1
     Route: 058
     Dates: start: 20170320, end: 20170326
  15. TUJEO [Concomitant]
     Indication: DIABETES MELLITUS
     Dosage: UNITS: IE
     Route: 058
  16. TOREM [Concomitant]
     Active Substance: TORSEMIDE
     Route: 048
     Dates: start: 20170403
  17. MOVICOL [Concomitant]
     Active Substance: POLYETHYLENE GLYCOL 3350\POTASSIUM CHLORIDE\SODIUM BICARBONATE\SODIUM CHLORIDE
     Indication: PROPHYLAXIS
     Route: 048
  18. VENETOCLAX [Suspect]
     Active Substance: VENETOCLAX
     Indication: MYELODYSPLASTIC SYNDROME
     Dosage: CYCLE 1
     Route: 048
     Dates: start: 20170320, end: 20170320
  19. PANTOZOL [Concomitant]
     Active Substance: PANTOPRAZOLE SODIUM
     Indication: OESOPHAGITIS
  20. TOREM [Concomitant]
     Active Substance: TORSEMIDE
     Indication: CARDIAC FAILURE
     Route: 048

REACTIONS (4)
  - Multiple organ dysfunction syndrome [Fatal]
  - Sepsis [Fatal]
  - Pneumonia [Fatal]
  - Metabolic acidosis [Fatal]

NARRATIVE: CASE EVENT DATE: 20170518
